FAERS Safety Report 5871457-4 (Version None)
Quarter: 2008Q3

REPORT INFORMATION
  Report Type: 
  Country: None (occurrence: None)
  Receive Date: 20080905
  Receipt Date: 20080828
  Transmission Date: 20090109
  Serious: Yes (Other)
  Sender: FDA-Public Use
  Company Number: PHHY2008GB17495

PATIENT
  Sex: Female

DRUGS (2)
  1. STALEVO 100 [Suspect]
     Dosage: 4 X 2 (100 TABLETS)
     Route: 048
  2. SINEMET [Concomitant]
     Dosage: 50 TABLETS, UNK

REACTIONS (3)
  - FALL [None]
  - HALLUCINATION [None]
  - HIP FRACTURE [None]
